FAERS Safety Report 19432449 (Version 1)
Quarter: 2021Q2

REPORT INFORMATION
  Report Type: Spontaneous
  Country: US (occurrence: US)
  Receive Date: 20210617
  Receipt Date: 20210617
  Transmission Date: 20210717
  Serious: Yes (Other)
  Sender: FDA-Public Use
  Company Number: US-TEVA-2021-US-1922458

PATIENT
  Age: 58 Year
  Sex: Male

DRUGS (8)
  1. BETAMETHASONE DIPROPIONATE. [Suspect]
     Active Substance: BETAMETHASONE DIPROPIONATE
     Indication: DERMATITIS
     Route: 061
  2. IPILIMUMAB [Suspect]
     Active Substance: IPILIMUMAB
     Indication: METASTATIC MALIGNANT MELANOMA
     Route: 065
  3. FLUCONAZOLE. [Concomitant]
     Active Substance: FLUCONAZOLE
     Dosage: 100 MILLIGRAM DAILY; FOR 6 ADDITIONAL DAYS
     Route: 048
  4. PEMBROLIZUMAB. [Suspect]
     Active Substance: PEMBROLIZUMAB
     Indication: METASTATIC MALIGNANT MELANOMA
     Dosage: 200MG EVERY 21 DAYS
     Route: 065
  5. FLUCONAZOLE. [Concomitant]
     Active Substance: FLUCONAZOLE
     Indication: DERMATITIS
     Dosage: 200 MILLIGRAM DAILY; ON DAY 1
     Route: 048
  6. MICONAZOLE NITRATE. [Suspect]
     Active Substance: MICONAZOLE NITRATE
     Indication: DERMATITIS
     Route: 061
  7. CETIRIZINE [Suspect]
     Active Substance: CETIRIZINE HYDROCHLORIDE
     Indication: DERMATITIS
     Dosage: 10 MILLIGRAM DAILY;
     Route: 065
  8. PREDNISONE. [Suspect]
     Active Substance: PREDNISONE
     Indication: DERMATITIS
     Dosage: 50 MILLIGRAM DAILY;
     Route: 048

REACTIONS (4)
  - Tinea versicolour [Recovered/Resolved]
  - Drug ineffective [Unknown]
  - Dermatitis [Recovered/Resolved]
  - False negative investigation result [Unknown]
